FAERS Safety Report 21194266 (Version 1)
Quarter: 2022Q3

REPORT INFORMATION
  Report Type: Spontaneous
  Country: US (occurrence: None)
  Receive Date: 20220809
  Receipt Date: 20220809
  Transmission Date: 20221026
  Serious: Yes (Other)
  Sender: FDA-Public Use
  Company Number: None

PATIENT
  Age: 39 Year
  Sex: Female
  Weight: 82.1 kg

DRUGS (3)
  1. REMICADE [Suspect]
     Active Substance: INFLIXIMAB
     Indication: Crohn^s disease
     Dosage: OTHER FREQUENCY : EVERY TWO WEEKS;?
     Route: 041
     Dates: start: 20220725
  2. LORATADINE [Concomitant]
     Active Substance: LORATADINE
     Dates: start: 20220808
  3. ACETAMINOPHEN [Concomitant]
     Active Substance: ACETAMINOPHEN
     Dates: start: 20220808

REACTIONS (6)
  - Bradyphrenia [None]
  - Feeling abnormal [None]
  - Malaise [None]
  - Headache [None]
  - Eye pain [None]
  - Impaired driving ability [None]

NARRATIVE: CASE EVENT DATE: 20220808
